FAERS Safety Report 5395006-2 (Version None)
Quarter: 2007Q3

REPORT INFORMATION
  Report Type: 
  Country: None (occurrence: None)
  Receive Date: 20070724
  Receipt Date: 20070712
  Transmission Date: 20080115
  Serious: Yes (Congenital Anomaly)
  Sender: FDA-Public Use
  Company Number: NL-JNJFOC-20070703125

PATIENT
  Sex: Female

DRUGS (3)
  1. HALDOL [Suspect]
     Indication: DRUG EXPOSURE DURING PREGNANCY
     Route: 015
  2. ZYPREXA [Suspect]
     Indication: DRUG EXPOSURE DURING PREGNANCY
     Route: 015
  3. EFFEXOR XR [Suspect]
     Indication: DRUG EXPOSURE DURING PREGNANCY
     Route: 015

REACTIONS (4)
  - DRUG EXPOSURE DURING PREGNANCY [None]
  - DWARFISM [None]
  - FOETAL GROWTH RETARDATION [None]
  - GROWTH RETARDATION [None]
